FAERS Safety Report 7251581-4 (Version None)
Quarter: 2011Q1

REPORT INFORMATION
  Report Type: 
  Country: None (occurrence: None)
  Receive Date: 20110128
  Receipt Date: 20110117
  Transmission Date: 20110831
  Serious: Yes (Other)
  Sender: FDA-Public Use
  Company Number: CA-ELI_LILLY_AND_COMPANY-CA201101004065

PATIENT
  Age: 55 Year
  Sex: Female

DRUGS (13)
  1. MULTI-VITAMIN [Concomitant]
  2. VITAMIN D [Concomitant]
  3. FORTEO [Suspect]
     Indication: OSTEOPOROSIS
     Dosage: 20 UG, DAILY (1/D)
     Route: 058
     Dates: start: 20090529
  4. EFFEXOR XR [Concomitant]
  5. ENZYMES [Concomitant]
  6. ATIVAN [Concomitant]
  7. WARFARIN [Concomitant]
  8. ZANAFLEX [Concomitant]
  9. DILAUDID [Concomitant]
     Dosage: 4 MG, EACH EVENING
  10. WOBENZYM [Concomitant]
  11. DIOVAN [Concomitant]
  12. BOTOX [Concomitant]
     Dosage: UNK, OTHER
  13. DILAUDID [Concomitant]
     Dosage: 2 MG, EACH MORNING

REACTIONS (7)
  - PARAESTHESIA [None]
  - BONE PAIN [None]
  - TRANSIENT ISCHAEMIC ATTACK [None]
  - FAECAL INCONTINENCE [None]
  - URINARY INCONTINENCE [None]
  - VISION BLURRED [None]
  - SYSTEMIC LUPUS ERYTHEMATOSUS [None]
